FAERS Safety Report 6308586-7 (Version None)
Quarter: 2009Q3

REPORT INFORMATION
  Report Type: 
  Country: None (occurrence: None)
  Receive Date: 20090813
  Receipt Date: 20090805
  Transmission Date: 20100115
  Serious: Yes (Hospitalization)
  Sender: FDA-Public Use
  Company Number: PHHO2009JP09762

PATIENT
  Sex: Female
  Weight: 48 kg

DRUGS (3)
  1. EXELON [Suspect]
     Indication: DEMENTIA ALZHEIMER'S TYPE
     Dosage: UNK
     Route: 048
     Dates: start: 20081107
  2. NORVASC [Concomitant]
     Indication: HYPERTENSION
     Dosage: UNK
  3. SEROQUEL [Concomitant]
     Dosage: UNK
     Dates: end: 20090804

REACTIONS (4)
  - ABASIA [None]
  - GAIT DISTURBANCE [None]
  - HAEMORRHAGE SUBCUTANEOUS [None]
  - SUBDURAL HAEMATOMA [None]
